FAERS Safety Report 6546557-6 (Version None)
Quarter: 2010Q1

REPORT INFORMATION
  Report Type: 
  Country: None (occurrence: None)
  Receive Date: 20100122
  Receipt Date: 20100112
  Transmission Date: 20100710
  Serious: Yes (Other)
  Sender: FDA-Public Use
  Company Number: US-ELI_LILLY_AND_COMPANY-US201001002643

PATIENT
  Sex: Female

DRUGS (10)
  1. EVISTA [Suspect]
     Indication: OSTEOPOROSIS
     Dosage: 60 MG, UNKNOWN
     Route: 065
     Dates: end: 20090101
  2. FORTEO [Suspect]
     Indication: OSTEOPOROSIS
     Dosage: 20 UG, DAILY (1/D)
     Route: 065
     Dates: start: 20091027
  3. LEVOTHYROXINE SODIUM [Concomitant]
     Dosage: 125 MG, DAILY (1/D)
     Route: 065
  4. CELEBREX [Concomitant]
     Dosage: 200 MG, DAILY (1/D)
     Route: 065
  5. PRILOSEC [Concomitant]
     Dosage: 40 MG, DAILY (1/D)
     Route: 065
  6. MULTI-VITAMIN [Concomitant]
     Dosage: UNK, DAILY (1/D)
     Route: 065
  7. ASPIRIN [Concomitant]
     Dosage: 81 MG, DAILY (1/D)
     Route: 065
  8. CALCIUM W/MINERALS/VITAMIN D NOS [Concomitant]
     Dosage: UNK, 3/D
     Route: 065
  9. VITAMIN D [Concomitant]
     Dosage: 400 IU, DAILY (1/D)
     Route: 065
  10. GLUCOSAMINE W/CHONDROITIN [Concomitant]
     Dosage: UNK, 2/D
     Route: 065

REACTIONS (4)
  - FEMUR FRACTURE [None]
  - FRACTURED SACRUM [None]
  - HIP FRACTURE [None]
  - PAIN [None]
